FAERS Safety Report 4820441-8 (Version None)
Quarter: 2005Q4

REPORT INFORMATION
  Report Type: 
  Country: None (occurrence: None)
  Receive Date: 20051104
  Receipt Date: 20051020
  Transmission Date: 20060501
  Serious: Yes (Life-Threatening, Hospitalization)
  Sender: FDA-Public Use
  Company Number: PHEH2005US11758

PATIENT
  Age: 98 Year
  Sex: Female
  Weight: 40 kg

DRUGS (13)
  1. LEVOTHYROXINE [Concomitant]
     Indication: HYPOTHYROIDISM
     Dosage: 50 UG, QD
     Route: 048
     Dates: start: 20050401, end: 20051001
  2. KLOR-CON [Concomitant]
     Indication: HYPERTENSION
     Dosage: 10 MEQ, QD
     Route: 048
     Dates: start: 20030101, end: 20050101
  3. ASPIRIN [Concomitant]
     Indication: HYPERTENSION
     Dosage: 81 MG, QD
     Route: 048
     Dates: start: 20030101, end: 20050101
  4. FUROSEMIDE [Concomitant]
     Indication: HYPERTENSION
     Dosage: 40 MG, QD
     Route: 048
     Dates: start: 20030101, end: 20050101
  5. ENABLEX [Suspect]
     Indication: HYPERTONIC BLADDER
     Dosage: 7.5 MG, QD
     Route: 048
     Dates: start: 20050811, end: 20050813
  6. CITRUCEL [Concomitant]
  7. COLACE [Concomitant]
  8. DETROL [Concomitant]
     Dosage: 4 MG, UNK
  9. KLOR-CON [Concomitant]
     Dosage: 10 MEQ, UNK
  10. LASIX [Concomitant]
     Dosage: 40 MG, UNK
  11. MIACALCIN [Concomitant]
  12. MULTI-VITAMINS [Concomitant]
  13. SYNTHROID [Concomitant]
     Dosage: 0.05 MG, UNK

REACTIONS (9)
  - ABDOMINAL MASS [None]
  - BLOOD POTASSIUM DECREASED [None]
  - CARDIAC MURMUR [None]
  - COLITIS ISCHAEMIC [None]
  - FEELING ABNORMAL [None]
  - GASTROINTESTINAL HAEMORRHAGE [None]
  - HOT FLUSH [None]
  - PLATELET COUNT DECREASED [None]
  - RECTAL HAEMORRHAGE [None]
